FAERS Safety Report 4929409-4 (Version None)
Quarter: 2006Q1

REPORT INFORMATION
  Report Type: 
  Country: None (occurrence: None)
  Receive Date: 20060301
  Receipt Date: 20050629
  Transmission Date: 20060701
  Serious: Yes (Hospitalization)
  Sender: FDA-Public Use
  Company Number: JP-NOVOPROD-245266

PATIENT
  Age: 50 Year
  Sex: Male
  Weight: 50 kg

DRUGS (2)
  1. NOVOSEVEN [Suspect]
     Dosage: 4.8 MG SINGLE
     Route: 042
     Dates: start: 20050624, end: 20050624
  2. NOVOSEVEN [Suspect]
     Dosage: 2 X 2,4 MG 6 H APART
     Route: 042
     Dates: start: 20050628, end: 20050628

REACTIONS (4)
  - CEREBRAL INFARCTION [None]
  - CEREBRAL THROMBOSIS [None]
  - LACUNAR INFARCTION [None]
  - LOSS OF CONSCIOUSNESS [None]
